FAERS Safety Report 8503880-3 (Version None)
Quarter: 2012Q3

REPORT INFORMATION
  Report Type: 
  Country: None (occurrence: None)
  Receive Date: 20120711
  Receipt Date: 20120702
  Transmission Date: 20120928
  Serious: Yes (Other)
  Sender: FDA-Public Use
  Company Number: US-ABBOTT-12P-163-0952189-00

PATIENT
  Sex: Female
  Weight: 74.002 kg

DRUGS (19)
  1. HUMIRA [Suspect]
     Dates: start: 20111103, end: 20120518
  2. MULTI-VITAMINS [Concomitant]
     Indication: PRODUCT USED FOR UNKNOWN INDICATION
     Route: 048
     Dates: start: 20110904, end: 20120601
  3. CAFFEINE [Concomitant]
     Dosage: 1 SERVING A DAY
     Route: 048
     Dates: start: 20111014, end: 20111231
  4. DHA [Concomitant]
     Indication: PRODUCT USED FOR UNKNOWN INDICATION
     Route: 048
     Dates: start: 20110904, end: 20120601
  5. PREDNISONE [Concomitant]
     Indication: PSORIATIC ARTHROPATHY
     Route: 048
     Dates: start: 20110904, end: 20111026
  6. PREDNISONE [Concomitant]
     Route: 048
     Dates: start: 20111110, end: 20111128
  7. NEXIUM [Concomitant]
     Indication: DYSPEPSIA
     Route: 048
     Dates: start: 20110904, end: 20111014
  8. EXTRA STRENGTH TYLENOL [Concomitant]
     Indication: ARTHRALGIA
  9. PREDNISONE [Concomitant]
     Route: 048
     Dates: start: 20111127, end: 20120201
  10. SULFASALAZINE [Concomitant]
     Route: 048
     Dates: start: 20111027, end: 20111103
  11. EXTRA STRENGTH TYLENOL [Concomitant]
     Indication: HEADACHE
     Dates: start: 20110904, end: 20111116
  12. HUMIRA [Suspect]
     Indication: PSORIATIC ARTHROPATHY
     Dates: start: 20110904, end: 20111014
  13. SERTRALINE HYDROCHLORIDE [Concomitant]
     Indication: DEPRESSION
     Route: 048
     Dates: start: 20110904, end: 20111001
  14. CALCIUM CARBONATE [Concomitant]
     Indication: DYSPEPSIA
     Dosage: 2 TABLETS TOTAL
     Route: 048
     Dates: start: 20120126, end: 20120414
  15. ZANTAC [Concomitant]
     Indication: DYSPEPSIA
     Route: 048
     Dates: start: 20120421, end: 20120601
  16. PREDNISONE [Concomitant]
     Route: 048
     Dates: start: 20111027, end: 20111109
  17. SULFASALAZINE [Concomitant]
     Indication: PSORIATIC ARTHROPATHY
     Route: 048
     Dates: start: 20110904, end: 20111026
  18. CAFFEINE [Concomitant]
     Indication: BLOOD CAFFEINE DECREASED
     Dosage: 1.5 SERVING A DAY
     Route: 048
     Dates: start: 20110904, end: 20111013
  19. CAFFEINE [Concomitant]
     Dosage: 1 SERVING 3.5 PER WEEK
     Route: 048
     Dates: start: 20120101, end: 20120601

REACTIONS (6)
  - PLACENTAL DISORDER [None]
  - ARTHRALGIA [None]
  - HEADACHE [None]
  - PSORIATIC ARTHROPATHY [None]
  - DYSPEPSIA [None]
  - DEPRESSION [None]
